FAERS Safety Report 18102833 (Version 6)
Quarter: 2020Q4

REPORT INFORMATION
  Report Type: Report from Study
  Country: US (occurrence: US)
  Receive Date: 20200803
  Receipt Date: 20201007
  Transmission Date: 20210113
  Serious: Yes (Death, Hospitalization, Other)
  Sender: FDA-Public Use
  Company Number: US-GILEAD-2020-0488163

PATIENT
  Age: 79 Year
  Sex: Male

DRUGS (2)
  1. IDELALISIB [Suspect]
     Active Substance: IDELALISIB
     Indication: B-CELL LYMPHOMA
     Dosage: 150 MG, BID
     Route: 048
     Dates: start: 20200529, end: 20200918
  2. IDELALISIB [Suspect]
     Active Substance: IDELALISIB
     Dosage: 100 MG, BID
     Route: 048

REACTIONS (15)
  - Pyrexia [Not Recovered/Not Resolved]
  - Haemoglobin decreased [Not Recovered/Not Resolved]
  - Cardiac failure congestive [Unknown]
  - Atrial fibrillation [Recovered/Resolved]
  - COVID-19 pneumonia [Fatal]
  - Asthenia [Not Recovered/Not Resolved]
  - COVID-19 [Unknown]
  - Intentional dose omission [Recovered/Resolved]
  - Atrial fibrillation [Unknown]
  - Stent placement [Unknown]
  - Cardiac asthma [Not Recovered/Not Resolved]
  - Gastric haemorrhage [Unknown]
  - Malaise [Not Recovered/Not Resolved]
  - Communication disorder [Not Recovered/Not Resolved]
  - Myocardial infarction [Unknown]

NARRATIVE: CASE EVENT DATE: 202007
